FAERS Safety Report 12543152 (Version 5)
Quarter: 2021Q2

REPORT INFORMATION
  Report Type: Other
  Country: BR (occurrence: BR)
  Receive Date: 20160711
  Receipt Date: 20210504
  Transmission Date: 20210716
  Serious: Yes (Hospitalization, Other)
  Sender: FDA-Public Use
  Company Number: BR-ROCHE-1461508

PATIENT
  Age: 60 Year
  Sex: Female
  Weight: 57 kg

DRUGS (11)
  1. MABTHERA [Suspect]
     Active Substance: RITUXIMAB
     Route: 042
     Dates: start: 20140922
  2. ATORVASTATIN [Concomitant]
     Active Substance: ATORVASTATIN
  3. MABTHERA [Suspect]
     Active Substance: RITUXIMAB
     Indication: RHEUMATOID ARTHRITIS
     Dosage: LAST INFUSION ON : 01?NOV?2015.
     Route: 042
     Dates: start: 20140224, end: 20160725
  4. ACTEMRA [Suspect]
     Active Substance: TOCILIZUMAB
     Indication: RHEUMATOID ARTHRITIS
     Route: 042
     Dates: start: 20171207
  5. CALCORT [Concomitant]
     Active Substance: DEFLAZACORT
     Indication: RHEUMATOID ARTHRITIS
  6. CALCIUM [Concomitant]
     Active Substance: CALCIUM
  7. CELEBRA [Concomitant]
     Active Substance: CELECOXIB
  8. DEFLAZACORT [Concomitant]
     Active Substance: DEFLAZACORT
  9. FOSAMAX [Concomitant]
     Active Substance: ALENDRONATE SODIUM
     Indication: OSTEOPOROSIS PROPHYLAXIS
  10. CITALOPRAM [Concomitant]
     Active Substance: CITALOPRAM HYDROBROMIDE
  11. CALCORT [Concomitant]
     Active Substance: DEFLAZACORT

REACTIONS (23)
  - Immunodeficiency [Unknown]
  - Confusional state [Not Recovered/Not Resolved]
  - Fall [Unknown]
  - Arthropathy [Recovering/Resolving]
  - Ear infection [Recovered/Resolved]
  - Spinal fusion acquired [Recovered/Resolved]
  - Pain [Not Recovered/Not Resolved]
  - Depression [Unknown]
  - Sensory disturbance [Unknown]
  - Balance disorder [Not Recovered/Not Resolved]
  - Irritable bowel syndrome [Unknown]
  - Headache [Unknown]
  - Malaise [Recovered/Resolved]
  - Ill-defined disorder [Not Recovered/Not Resolved]
  - Pharyngitis [Recovered/Resolved]
  - Gastroenteritis [Unknown]
  - Sinusitis [Recovered/Resolved]
  - Dizziness [Unknown]
  - Tooth extraction [Recovered/Resolved]
  - Dislocation of vertebra [Recovered/Resolved]
  - Hypersensitivity [Recovered/Resolved]
  - Spinal cord compression [Recovered/Resolved]
  - Sinusitis [Recovered/Resolved]

NARRATIVE: CASE EVENT DATE: 20140903
